FAERS Safety Report 25989284 (Version 2)
Quarter: 2025Q4

REPORT INFORMATION
  Report Type: Spontaneous
  Country: EU (occurrence: EU)
  Receive Date: 20251103
  Receipt Date: 20251127
  Transmission Date: 20260118
  Serious: Yes (Hospitalization, Other)
  Sender: AZURITY PHARMACEUTICALS
  Company Number: EU-AZURITY PHARMACEUTICALS, INC.-AZR202510-003326

PATIENT
  Age: 75 Year
  Sex: Male

DRUGS (1)
  1. TRIPTORELIN [Suspect]
     Active Substance: TRIPTORELIN
     Indication: Prostate cancer metastatic
     Dosage: 11.25 MILLIGRAM(S), IN 3 MONTH (3 INJECTIONS IN TOTAL)
     Route: 058
     Dates: start: 20250326, end: 20250924

REACTIONS (3)
  - Evans syndrome [Recovered/Resolved]
  - Immune thrombocytopenia [Recovered/Resolved]
  - Incorrect route of product administration [Unknown]

NARRATIVE: CASE EVENT DATE: 20250326
